FAERS Safety Report 14206748 (Version 1)
Quarter: 2017Q4

REPORT INFORMATION
  Report Type: Report from Study
  Country: None (occurrence: FR)
  Receive Date: 20171121
  Receipt Date: 20171121
  Transmission Date: 20180321
  Serious: Yes (Hospitalization)
  Sender: FDA-Public Use
  Company Number: FR-ABBVIE-17K-056-2169456-00

PATIENT
  Sex: Male

DRUGS (1)
  1. DUODOPA [Suspect]
     Active Substance: CARBIDOPA\LEVODOPA
     Indication: PARKINSON^S DISEASE
     Dosage: MORNING DOSE OF 17ML; EXTRA DOSE OF 3ML;  CONTINUOUS FLOW RATE (DURING THE DAY) 4.8ML
     Route: 050
     Dates: start: 20160125

REACTIONS (2)
  - Device dislocation [Unknown]
  - Fall [Unknown]

NARRATIVE: CASE EVENT DATE: 20171119
